FAERS Safety Report 6800761-8 (Version None)
Quarter: 2010Q2

REPORT INFORMATION
  Report Type: 
  Country: None (occurrence: None)
  Receive Date: 20100629
  Receipt Date: 20100621
  Transmission Date: 20101027
  Serious: Yes (Hospitalization)
  Sender: FDA-Public Use
  Company Number: FR-KINGPHARMUSA00001-K201000777

PATIENT
  Age: 67 Year
  Sex: Female

DRUGS (16)
  1. ALTACE [Suspect]
     Dosage: 2.5 MG, QD
     Route: 048
     Dates: end: 20100512
  2. LASIX [Suspect]
     Dosage: 20 MG, QD
     Route: 048
     Dates: end: 20100501
  3. LASIX [Suspect]
     Dosage: UNK
     Route: 048
  4. SPIRONOLACTONE [Suspect]
     Dosage: 50 MG, QD
     Route: 048
  5. CONCOR [Suspect]
     Dosage: 10 MG, QD
     Route: 048
  6. RISPERDAL [Suspect]
     Dosage: 4 MG, QD
     Route: 048
     Dates: start: 20100423
  7. RISPERDAL [Suspect]
     Dosage: 4 MG, QD
     Route: 048
     Dates: start: 20100420, end: 20100422
  8. MELPERONE [Suspect]
     Dosage: 25 MG, QD
     Route: 048
     Dates: start: 20100420, end: 20100502
  9. MELPERONE [Suspect]
     Dosage: 50 MG, QD
     Route: 048
     Dates: start: 20100503, end: 20100511
  10. LORAZEPAM [Suspect]
     Dosage: 1 MG, QD
     Route: 048
     Dates: start: 20100427, end: 20100503
  11. LORAZEPAM [Suspect]
     Dosage: 1.5 MG, QD
     Route: 048
     Dates: start: 20100422, end: 20100426
  12. LORAZEPAM [Suspect]
     Dosage: 3.5 MG, UNK
     Route: 048
     Dates: start: 20100419, end: 20100401
  13. LORAZEPAM [Suspect]
     Dosage: 0.5 MG, QD
     Route: 048
     Dates: start: 20100504
  14. REMERGIL [Suspect]
     Dosage: UNK
     Route: 048
     Dates: start: 20100506
  15. ACETYLSALICYLIC ACID [Concomitant]
     Dosage: UNK
  16. SIMVASTATIN [Concomitant]
     Dosage: UNK

REACTIONS (6)
  - CONTUSION [None]
  - DIZZINESS [None]
  - FALL [None]
  - HEMIPARESIS [None]
  - HYPOTENSION [None]
  - UNRESPONSIVE TO STIMULI [None]
